FAERS Safety Report 24707190 (Version 1)
Quarter: 2024Q4

REPORT INFORMATION
  Report Type: Spontaneous
  Country: US (occurrence: US)
  Receive Date: 20241206
  Receipt Date: 20241206
  Transmission Date: 20250115
  Serious: No
  Sender: EISAI
  Company Number: US-Eisai-EC-2024-176627

PATIENT
  Age: 78 Year
  Sex: Male
  Weight: 86 kg

DRUGS (1)
  1. LEQEMBI [Suspect]
     Active Substance: LECANEMAB-IRMB
     Indication: Dementia
     Dosage: DOSE UNKNOWN
     Route: 042
     Dates: start: 20241007

REACTIONS (2)
  - Chills [Recovered/Resolved]
  - Back pain [Recovered/Resolved]

NARRATIVE: CASE EVENT DATE: 20241007
